FAERS Safety Report 4621503-0 (Version None)
Quarter: 2005Q1

REPORT INFORMATION
  Report Type: 
  Country: None (occurrence: None)
  Receive Date: 20050328
  Receipt Date: 20050316
  Transmission Date: 20050727
  Serious: Yes (Hospitalization, Other)
  Sender: FDA-Public Use
  Company Number: HQWYE157616MAR05

PATIENT
  Age: 4 Year
  Sex: Male

DRUGS (1)
  1. SOMAC (PANTOPRAZOLE, INJECTION) [Suspect]
     Indication: HAEMATEMESIS
     Dosage: SOME DOSE FORM SOMETIME(S) PER DAY
     Route: 042
     Dates: end: 20050214

REACTIONS (1)
  - THROMBOCYTOPENIA [None]
